FAERS Safety Report 8069229 (Version 2)
Quarter: 2012Q4

REPORT INFORMATION
  Report Type: 
  Country: FR (occurrence: FR)
  Receive Date: 20110804
  Receipt Date: 20121126
  Transmission Date: 20130627
  Serious: Yes (Hospitalization)
  Sender: FDA-Public Use
  Company Number: FR-GLAXOSMITHKLINE-B0735518A

PATIENT
  Age: 92 Year
  Sex: Female
  Weight: 64.5 kg

DRUGS (12)
  1. ARIXTRA [Suspect]
     Indication: DEEP VEIN THROMBOSIS
     Dosage: 7.5MG Per day
     Route: 058
     Dates: start: 20110516, end: 20110606
  2. PREVISCAN [Concomitant]
     Dosage: .5UNIT At night
     Route: 048
  3. G5% PLASMALYTE [Concomitant]
     Dosage: 1INJ At night
     Route: 058
  4. ATHYMIL [Concomitant]
     Dosage: 10MG At night
  5. CARDENSIEL [Concomitant]
     Dosage: 1.25MG In the morning
  6. RIVOTRIL [Concomitant]
     Dosage: 4DROP In the morning
     Route: 048
  7. DOLIPRANE [Concomitant]
     Indication: PAIN
     Dosage: 1G Four times per day
  8. FORLAX [Concomitant]
     Indication: CONSTIPATION
     Dosage: 1SAC In the morning
     Route: 048
  9. LASILIX [Concomitant]
     Dosage: 80MG In the morning
  10. TILDIEM [Concomitant]
     Dosage: 60MG Twice per day
  11. LOVENOX [Concomitant]
     Indication: DEEP VEIN THROMBOSIS
     Route: 065
     Dates: start: 201105, end: 201105
  12. AUGMENTIN [Concomitant]
     Indication: LUNG DISORDER
     Route: 065
     Dates: start: 201105

REACTIONS (2)
  - Subcutaneous haematoma [Recovered/Resolved]
  - Incorrect drug administration duration [Unknown]
